FAERS Safety Report 6474594-9 (Version None)
Quarter: 2009Q4

REPORT INFORMATION
  Report Type: 
  Country: None (occurrence: None)
  Receive Date: 20091201
  Receipt Date: 20091116
  Transmission Date: 20100525
  Serious: Yes (Hospitalization)
  Sender: FDA-Public Use
  Company Number: IDA-00295

PATIENT
  Age: 53 Year
  Sex: Male

DRUGS (2)
  1. AVLOCARDYL (PROPANOLOL) [Suspect]
     Indication: VARICOSE VEIN
     Dosage: ORAL
     Route: 048
     Dates: start: 20060401
  2. HEPSERA (ADEFOVIR DIPIVOXIL) STRENGTH: 10MG [Suspect]
     Indication: HEPATITIS B
     Dosage: TABLET; ORAL
     Route: 048
     Dates: start: 20060301, end: 20090808

REACTIONS (1)
  - PANCREATITIS ACUTE [None]
